FAERS Safety Report 25019743 (Version 1)
Quarter: 2025Q1

REPORT INFORMATION
  Report Type: Spontaneous
  Country: ES (occurrence: ES)
  Receive Date: 20250227
  Receipt Date: 20250227
  Transmission Date: 20250409
  Serious: Yes (Hospitalization)
  Sender: TEVA
  Company Number: None

PATIENT
  Sex: Male

DRUGS (2)
  1. ASPIRIN [Interacting]
     Active Substance: ASPIRIN
     Indication: Acute myocardial infarction
     Dosage: ACETYLSALICALIC ACID (176A)
     Route: 048
     Dates: start: 20230801
  2. TICAGRELOR [Interacting]
     Active Substance: TICAGRELOR
     Indication: Acute myocardial infarction
     Dosage: TICAGRELOR (8461A)
     Route: 048
     Dates: start: 20230801

REACTIONS (1)
  - Melaena [Recovered/Resolved]

NARRATIVE: CASE EVENT DATE: 20240301
